FAERS Safety Report 25226264 (Version 2)
Quarter: 2025Q2

REPORT INFORMATION
  Report Type: Spontaneous
  Country: FR (occurrence: FR)
  Receive Date: 20250422
  Receipt Date: 20250512
  Transmission Date: 20250717
  Serious: No
  Sender: GUERBET
  Company Number: FR-GUERBETG-FR-20250175

PATIENT
  Age: 86 Year
  Sex: Female

DRUGS (1)
  1. OPTIRAY 350 [Suspect]
     Active Substance: IOVERSOL
     Indication: Computerised tomogram
     Dates: start: 20250407, end: 20250407

REACTIONS (5)
  - Oropharyngeal discomfort [Recovered/Resolved]
  - Ear discomfort [Recovered/Resolved]
  - Blood pressure increased [Recovered/Resolved]
  - Nasal discomfort [Recovered/Resolved]
  - Urticaria [Recovered/Resolved]

NARRATIVE: CASE EVENT DATE: 20250407
